FAERS Safety Report 5528402-0 (Version None)
Quarter: 2007Q4

REPORT INFORMATION
  Report Type: 
  Country: None (occurrence: None)
  Receive Date: 20071121
  Receipt Date: 20071109
  Transmission Date: 20080405
  Serious: Yes (Other)
  Sender: FDA-Public Use
  Company Number: RENA-12317

PATIENT
  Age: 69 Year
  Sex: Female

DRUGS (8)
  1. PHOSBLOCK 250 MG TABLETS. MFR: KIRIN BREWERY [Suspect]
     Indication: HYPERPHOSPHATAEMIA
     Dosage: 3 G DAILY PO
     Route: 048
     Dates: start: 20040813, end: 20040826
  2. PHOSBLOCK 250 MG TABLETS. MFR: KIRIN BREWERY [Suspect]
     Indication: HYPERPHOSPHATAEMIA
     Dosage: 3.75 G DAILY PO
     Route: 048
     Dates: start: 20040827, end: 20040916
  3. PHOSBLOCK 250 MG TABLETS. MFR: KIRIN BREWERY [Suspect]
     Indication: HYPERPHOSPHATAEMIA
     Dosage: 6 G DAILY PO
     Route: 048
  4. PHOSBLOCK 250 MG TABLETS. MFR: KIRIN BREWERY [Suspect]
     Indication: HYPERPHOSPHATAEMIA
     Dosage: 3 G DAILY PO
     Route: 048
     Dates: start: 20040917
  5. CALTAN (CALCIUM CARBONATE) [Concomitant]
  6. EVISTA [Concomitant]
  7. ASPIRIN [Concomitant]
  8. THYRADIN [Concomitant]

REACTIONS (3)
  - BLOOD THYROID STIMULATING HORMONE INCREASED [None]
  - DRUG EFFECT DECREASED [None]
  - DRUG INTERACTION [None]
